FAERS Safety Report 20519352 (Version 2)
Quarter: 2022Q1

REPORT INFORMATION
  Report Type: Spontaneous
  Country: JP (occurrence: JP)
  Receive Date: 20220225
  Receipt Date: 20220309
  Transmission Date: 20220423
  Serious: No
  Sender: FDA-Public Use
  Company Number: JP-GSKNCCC-Case-01427521_AE-55077

PATIENT
  Age: 45 Year
  Sex: Male

DRUGS (8)
  1. SOTROVIMAB [Suspect]
     Active Substance: SOTROVIMAB
     Indication: COVID-19
     Dosage: 500 MG/100 ML/30 MIN
     Dates: end: 20220218
  2. CLOZARIL [Concomitant]
     Active Substance: CLOZAPINE
     Dosage: 600 MG IN 3 DIVIDED DOSES
  3. TEGRETOL [Concomitant]
     Active Substance: CARBAMAZEPINE
     Dosage: 0.8 G, QD
  4. CYANOCOBALAMIN\PYRIDOXINE HYDROCHLORIDE\THIAMINE [Concomitant]
     Active Substance: CYANOCOBALAMIN\PYRIDOXINE HYDROCHLORIDE\THIAMINE
     Dosage: 3 CAPSULES IN 3 DIVIDED DOSES
  5. POLARAMINE [Concomitant]
     Active Substance: DEXCHLORPHENIRAMINE MALEATE
     Dosage: 3 TABLETS IN 3 DIVIDED DOSES
  6. NITRAZEPAM [Concomitant]
     Active Substance: NITRAZEPAM
     Dosage: 0.6 G, QD
  7. POLAPREZINC [Concomitant]
     Active Substance: POLAPREZINC
     Dosage: 2 TABLETS IN 2 DIVIDED DOSES
  8. ALOSENN [Concomitant]
     Dosage: 1 G, QD

REACTIONS (5)
  - Infusion site erythema [Recovered/Resolved]
  - Rash erythematous [Recovered/Resolved]
  - Rash macular [Recovered/Resolved]
  - Rash [Recovered/Resolved]
  - Infusion related reaction [Recovered/Resolved]

NARRATIVE: CASE EVENT DATE: 20220218
